FAERS Safety Report 8777104 (Version 2)
Quarter: 2013Q2

REPORT INFORMATION
  Report Type: Spontaneous
  Country: BR (occurrence: BR)
  Receive Date: 20120911
  Receipt Date: 20130521
  Transmission Date: 20140414
  Serious: Yes (Hospitalization)
  Sender: FDA-Public Use
  Company Number: BR-BRISTOL-MYERS SQUIBB COMPANY-16933137

PATIENT
  Age: 83 Year
  Sex: Female
  Weight: 80 kg

DRUGS (4)
  1. ONGLYZA TABS 5 MG [Suspect]
     Indication: TYPE 2 DIABETES MELLITUS
     Dosage: ONGOING
     Route: 048
  2. TRYPTANOL [Concomitant]
  3. RIVOTRIL [Concomitant]
  4. LOPRIL-D [Concomitant]

REACTIONS (5)
  - Fall [Unknown]
  - Facial bones fracture [Unknown]
  - Haematoma [Unknown]
  - Convulsion [Unknown]
  - Femur fracture [Unknown]
